FAERS Safety Report 9793525 (Version 2)
Quarter: 2014Q2

REPORT INFORMATION
  Report Type: Spontaneous
  Country: BR (occurrence: BR)
  Receive Date: 20140102
  Receipt Date: 20140502
  Transmission Date: 20141212
  Serious: Yes (Hospitalization)
  Sender: FDA-Public Use
  Company Number: BR-BRISTOL-MYERS SQUIBB COMPANY-19936988

PATIENT
  Age: 60 Year
  Sex: Male
  Weight: 88 kg

DRUGS (8)
  1. BYETTA PEN DISPOSABLE [Suspect]
     Indication: DIABETES MELLITUS
     Dosage: DOSE:5MCG 2PER1 DAY
     Route: 058
  2. INSULIN [Concomitant]
     Indication: BLOOD GLUCOSE
  3. ATACAND [Concomitant]
     Indication: HYPERTENSION
  4. LANTUS [Concomitant]
     Indication: DIABETES MELLITUS
  5. METFORMIN HCL [Concomitant]
     Indication: DIABETES MELLITUS
  6. ASPIRIN [Concomitant]
  7. CRESTOR [Concomitant]
     Indication: BLOOD CHOLESTEROL
  8. METFORMIN [Concomitant]

REACTIONS (4)
  - Salmonellosis [Unknown]
  - Incorrect product storage [Unknown]
  - Weight decreased [Unknown]
  - Drug administration error [Unknown]
